FAERS Safety Report 20392355 (Version 3)
Quarter: 2022Q3

REPORT INFORMATION
  Report Type: Spontaneous
  Country: US (occurrence: None)
  Receive Date: 20220128
  Receipt Date: 20220729
  Transmission Date: 20221027
  Serious: Yes (Other)
  Sender: FDA-Public Use
  Company Number: 2022A038795

PATIENT
  Age: 69 Year
  Sex: Female
  Weight: 84.4 kg

DRUGS (66)
  1. NEXIUM [Suspect]
     Active Substance: ESOMEPRAZOLE MAGNESIUM
     Indication: Gastrooesophageal reflux disease
     Route: 048
     Dates: start: 2006, end: 2017
  2. NEXIUM [Suspect]
     Active Substance: ESOMEPRAZOLE MAGNESIUM
     Indication: Gastrooesophageal reflux disease
     Dosage: GENERIC
     Route: 065
     Dates: start: 2015
  3. NEXIUM [Suspect]
     Active Substance: ESOMEPRAZOLE MAGNESIUM
     Indication: Gastrooesophageal reflux disease
     Route: 048
     Dates: start: 20160328
  4. OMEPRAZOLE [Suspect]
     Active Substance: OMEPRAZOLE
     Indication: Gastrooesophageal reflux disease
     Route: 048
     Dates: start: 2016
  5. PROTONIX [Suspect]
     Active Substance: PANTOPRAZOLE SODIUM
     Indication: Gastrooesophageal reflux disease
     Route: 065
     Dates: start: 2017
  6. PROTONIX [Suspect]
     Active Substance: PANTOPRAZOLE SODIUM
     Indication: Gastrooesophageal reflux disease
     Dosage: GENERIC
     Route: 065
     Dates: start: 2017
  7. LANTUS [Concomitant]
     Active Substance: INSULIN GLARGINE
  8. LEVEMIR [Concomitant]
     Active Substance: INSULIN DETEMIR
  9. FLUTICASONE [Concomitant]
     Active Substance: FLUTICASONE
  10. VICTOZA [Concomitant]
     Active Substance: LIRAGLUTIDE
  11. BUPROPION [Concomitant]
     Active Substance: BUPROPION
  12. BENZONATATE [Concomitant]
     Active Substance: BENZONATATE
  13. PREDNISONE [Concomitant]
     Active Substance: PREDNISONE
  14. AMOXICILLIN\CLAVULANATE POTASSIUM [Concomitant]
     Active Substance: AMOXICILLIN\CLAVULANATE POTASSIUM
  15. ALPRAZOLAM [Concomitant]
     Active Substance: ALPRAZOLAM
  16. CARVEDILOL [Concomitant]
     Active Substance: CARVEDILOL
  17. SODIUM BICARBONATE [Concomitant]
     Active Substance: SODIUM BICARBONATE
  18. MECLIZINE [Concomitant]
     Active Substance: MECLIZINE HYDROCHLORIDE
  19. PANTOPRAZOLE [Concomitant]
     Active Substance: PANTOPRAZOLE
  20. TRIAMCINOLONE [Concomitant]
     Active Substance: TRIAMCINOLONE
  21. PREMARIN [Concomitant]
     Active Substance: ESTROGENS, CONJUGATED
  22. CETIRIZINE HYDROCHLORIDE [Concomitant]
     Active Substance: CETIRIZINE HYDROCHLORIDE
  23. CLOTRIMAZOLE [Concomitant]
     Active Substance: CLOTRIMAZOLE
  24. OXYCODONE [Concomitant]
     Active Substance: OXYCODONE
  25. PROVENTIL [Concomitant]
     Active Substance: ALBUTEROL
  26. METFORMIN [Concomitant]
     Active Substance: METFORMIN HYDROCHLORIDE
  27. BISACODYL [Concomitant]
     Active Substance: BISACODYL
  28. FERROUS SULFATE [Concomitant]
     Active Substance: FERROUS SULFATE
  29. KETOCONAZOLE [Concomitant]
     Active Substance: KETOCONAZOLE
  30. PREDNISOLONE [Concomitant]
     Active Substance: PREDNISOLONE
  31. AMITRIPTYLINE [Concomitant]
     Active Substance: AMITRIPTYLINE
  32. OXYBUTYNIN [Concomitant]
     Active Substance: OXYBUTYNIN
  33. GABAPENTIN [Concomitant]
     Active Substance: GABAPENTIN
  34. CELEBREX [Concomitant]
     Active Substance: CELECOXIB
     Indication: Pain
  35. LORATADINE [Concomitant]
     Active Substance: LORATADINE
  36. VOLTAREN [Concomitant]
     Active Substance: DICLOFENAC SODIUM
     Indication: Pain
  37. KETOROLAC [Concomitant]
     Active Substance: KETOROLAC TROMETHAMINE
     Indication: Pain
  38. MELOXICAM [Concomitant]
     Active Substance: MELOXICAM
     Indication: Osteoarthritis
  39. OXAPROZIN [Concomitant]
     Active Substance: OXAPROZIN
     Indication: Pain
  40. TRAMADOL [Concomitant]
     Active Substance: TRAMADOL
     Indication: Pain
  41. ACYCLOVIR [Concomitant]
     Active Substance: ACYCLOVIR
     Indication: Viral infection
  42. ZOVIRAX [Concomitant]
     Active Substance: ACYCLOVIR
     Indication: Viral infection
  43. AMOXICILLIN [Concomitant]
     Active Substance: AMOXICILLIN
     Indication: Infection
  44. AZITHROMYCIN [Concomitant]
     Active Substance: AZITHROMYCIN
     Indication: Infection
  45. CIPROFLOXACIN [Concomitant]
     Active Substance: CIPROFLOXACIN
     Indication: Infection
  46. CIPRO [Concomitant]
     Active Substance: CIPROFLOXACIN HYDROCHLORIDE
     Indication: Infection
  47. DOXYCYCLINE [Concomitant]
     Active Substance: DOXYCYCLINE
     Indication: Infection
  48. ERYTHROMYCIN [Concomitant]
     Active Substance: ERYTHROMYCIN
     Indication: Infection
  49. ITRACONAZOLE [Concomitant]
     Active Substance: ITRACONAZOLE
     Indication: Infection
  50. VIGAMOX [Concomitant]
     Active Substance: MOXIFLOXACIN HYDROCHLORIDE
     Indication: Infection
  51. LOSARTAN [Concomitant]
     Active Substance: LOSARTAN
     Indication: Hypertension
  52. COZAAR [Concomitant]
     Active Substance: LOSARTAN POTASSIUM
     Indication: Hypertension
  53. FUROSEMIDE [Concomitant]
     Active Substance: FUROSEMIDE
     Indication: Oedema
  54. LASIX [Concomitant]
     Active Substance: FUROSEMIDE
     Indication: Oedema
  55. HYDROCHLOROTHIAZIDE [Concomitant]
     Active Substance: HYDROCHLOROTHIAZIDE
     Indication: Hypertension
  56. SPIRONOLACTONE [Concomitant]
     Active Substance: SPIRONOLACTONE
     Indication: Hypertension
  57. PRAVASTATIN [Concomitant]
     Active Substance: PRAVASTATIN
     Indication: Hypertension
  58. CRESTOR [Concomitant]
     Active Substance: ROSUVASTATIN CALCIUM
     Indication: Blood cholesterol increased
  59. SIMVASTATIN [Concomitant]
     Active Substance: SIMVASTATIN
     Indication: Blood cholesterol increased
  60. HYDRALAZINE [Concomitant]
     Active Substance: HYDRALAZINE HYDROCHLORIDE
     Indication: Hypertension
  61. AMITRIPTYLINE [Concomitant]
     Active Substance: AMITRIPTYLINE
     Indication: Antidepressant therapy
  62. IBUPROFEN [Concomitant]
     Active Substance: IBUPROFEN
     Indication: Pain
  63. TYLENOL [Concomitant]
     Active Substance: ACETAMINOPHEN
     Indication: Pain
  64. ASPIRIN [Concomitant]
     Active Substance: ASPIRIN
     Indication: Diuretic therapy
  65. TRIPHROCATS [Concomitant]
     Indication: Hypovitaminosis
  66. PEPCID AC [Concomitant]
     Active Substance: FAMOTIDINE

REACTIONS (6)
  - Chronic kidney disease [Not Recovered/Not Resolved]
  - Acute kidney injury [Not Recovered/Not Resolved]
  - Renal failure [Unknown]
  - Nephrogenic anaemia [Unknown]
  - End stage renal disease [Unknown]
  - Gastrooesophageal reflux disease [Unknown]

NARRATIVE: CASE EVENT DATE: 20170101
